FAERS Safety Report 22612879 (Version 1)
Quarter: 2023Q2

REPORT INFORMATION
  Report Type: Spontaneous
  Country: US (occurrence: US)
  Receive Date: 20230617
  Receipt Date: 20230617
  Transmission Date: 20230722
  Serious: No
  Sender: FDA-Public Use
  Company Number: US-SA-SAC20230615001456

PATIENT
  Sex: Female

DRUGS (1)
  1. DUPIXENT [Suspect]
     Active Substance: DUPILUMAB
     Dosage: 300MG FREQUENCY: OTHER
     Route: 058

REACTIONS (9)
  - Headache [Unknown]
  - Wheezing [Not Recovered/Not Resolved]
  - Illness [Unknown]
  - Blood glucose decreased [Unknown]
  - Ocular discomfort [Unknown]
  - Nausea [Unknown]
  - Urticaria [Unknown]
  - Conjunctivitis [Unknown]
  - Dizziness [Unknown]
